FAERS Safety Report 6367923-8 (Version None)
Quarter: 2009Q3

REPORT INFORMATION
  Report Type: 
  Country: None (occurrence: None)
  Receive Date: 20090922
  Receipt Date: 20081016
  Transmission Date: 20100115
  Serious: No
  Sender: FDA-Public Use
  Company Number: A0752925A

PATIENT
  Sex: Male

DRUGS (7)
  1. SEREVENT [Suspect]
     Indication: CHRONIC OBSTRUCTIVE PULMONARY DISEASE
     Dosage: 1PUFF TWICE PER DAY
     Route: 055
     Dates: start: 20070101
  2. ALBUTEROL [Concomitant]
     Route: 055
  3. NEXIUM [Concomitant]
  4. ZANTAC [Concomitant]
  5. SINGULAIR [Concomitant]
  6. PREDNISONE [Concomitant]
  7. CARTIA XT [Concomitant]

REACTIONS (2)
  - BRONCHOSPASM [None]
  - DRUG INEFFECTIVE [None]
